FAERS Safety Report 4988266-0 (Version None)
Quarter: 2006Q2

REPORT INFORMATION
  Report Type: 
  Country: None (occurrence: None)
  Receive Date: 20060425
  Receipt Date: 20060414
  Transmission Date: 20061013
  Serious: Yes (Other)
  Sender: FDA-Public Use
  Company Number: JP-2006-007124

PATIENT
  Age: 85 Year
  Sex: Male

DRUGS (10)
  1. PROSCOPE 300 (IOPROMIDE)  INFUSION [Suspect]
     Indication: COMPUTERISED TOMOGRAM
     Dosage: 70 ML, 1 ML/S, INTRAVENOUS
     Route: 042
     Dates: start: 20060306, end: 20060306
  2. LASIX [Concomitant]
  3. APORASNON [Concomitant]
  4. BLOPRESS (CANDESARTAN CILEXETIL0 [Concomitant]
  5. SALOBEL [Concomitant]
  6. LANSORAL (LANSOPRAZOLE) [Concomitant]
  7. ADONA (AC-17) (CARBAZOCHROME SODIUM SULFONATE) [Concomitant]
  8. TRANSAMIN (TRANEXAMIC ACID) [Concomitant]
  9. FERRUM [Concomitant]
  10. WARFARIN SODIUM [Concomitant]

REACTIONS (20)
  - BLOOD ALKALINE PHOSPHATASE INCREASED [None]
  - BLOOD LACTATE DEHYDROGENASE INCREASED [None]
  - BLOOD POTASSIUM INCREASED [None]
  - BREATH SOUNDS ABNORMAL [None]
  - ERYTHEMA [None]
  - FLUSHING [None]
  - HAEMATOCRIT DECREASED [None]
  - HAEMOGLOBIN DECREASED [None]
  - LOSS OF CONSCIOUSNESS [None]
  - LYMPHOCYTE COUNT DECREASED [None]
  - NAUSEA [None]
  - NEUTROPHIL COUNT DECREASED [None]
  - PLATELET COUNT DECREASED [None]
  - PROTEIN TOTAL DECREASED [None]
  - PROTEIN URINE PRESENT [None]
  - RED BLOOD CELL COUNT DECREASED [None]
  - SHOCK [None]
  - UNRESPONSIVE TO VERBAL STIMULI [None]
  - URINARY INCONTINENCE [None]
  - UROBILIN URINE PRESENT [None]
